FAERS Safety Report 21223371 (Version 2)
Quarter: 2022Q3

REPORT INFORMATION
  Report Type: Spontaneous
  Country: AU (occurrence: AU)
  Receive Date: 20220817
  Receipt Date: 20220826
  Transmission Date: 20221026
  Serious: No
  Sender: FDA-Public Use
  Company Number: AU-MYLANLABS-2022M1086315

PATIENT
  Sex: Male

DRUGS (1)
  1. CLOZARIL [Suspect]
     Active Substance: CLOZAPINE
     Indication: Schizophrenia
     Dosage: 12 MILLIGRAM
     Route: 048
     Dates: start: 20220804

REACTIONS (1)
  - C-reactive protein increased [Unknown]
